FAERS Safety Report 17359039 (Version 2)
Quarter: 2020Q1

REPORT INFORMATION
  Report Type: Other
  Country: DE (occurrence: DE)
  Receive Date: 20200202
  Receipt Date: 20200312
  Transmission Date: 20200409
  Serious: Yes (Death)
  Sender: FDA-Public Use
  Company Number: DE-CELLTRION INC.-2020DE018602

PATIENT

DRUGS (3)
  1. DOCETAXEL. [Suspect]
     Active Substance: DOCETAXEL
     Indication: BREAST CANCER
     Dosage: 77 MG, PER CYCLE
     Route: 065
     Dates: start: 20181010
  2. TRASTUZUMAB (UNKNOWN) [Suspect]
     Active Substance: TRASTUZUMAB
     Indication: BREAST CANCER
     Dosage: 384 MG, CYCLIC
     Route: 042
     Dates: start: 20181011
  3. PERTUZUMAB. [Suspect]
     Active Substance: PERTUZUMAB
     Indication: BREAST CANCER
     Dosage: 840 MG, PER CYCLE
     Route: 042
     Dates: start: 20181011

REACTIONS (4)
  - Chills [Recovered/Resolved]
  - Blood pressure decreased [Fatal]
  - Death [Fatal]
  - Seizure [Fatal]

NARRATIVE: CASE EVENT DATE: 20181011
